FAERS Safety Report 7979900-1 (Version None)
Quarter: 2011Q4

REPORT INFORMATION
  Report Type: 
  Country: None (occurrence: None)
  Receive Date: 20111214
  Receipt Date: 20111209
  Transmission Date: 20120403
  Serious: Yes (Death, Hospitalization)
  Sender: FDA-Public Use
  Company Number: DE-ROCHE-1017426

PATIENT
  Sex: Female
  Weight: 84 kg

DRUGS (18)
  1. GRANISETRON [Concomitant]
     Dates: start: 20111129, end: 20111204
  2. NEUPOGEN [Concomitant]
     Dosage: TDD: 48
     Dates: start: 20111203, end: 20111203
  3. EMEND [Concomitant]
     Dates: start: 20111121, end: 20111121
  4. PACLITAXEL PROTEIN-BOUND/ALBUMIN [Suspect]
     Indication: BREAST CANCER
     Route: 042
     Dates: start: 20111114, end: 20111128
  5. GRANISETRON [Concomitant]
     Dates: start: 20111121, end: 20111121
  6. NEUPOGEN [Concomitant]
     Dosage: TDD: 48
     Dates: start: 20111129, end: 20111129
  7. RAMIPRIL [Concomitant]
     Dosage: 5/25MG
     Route: 048
  8. RAMIPRIL [Concomitant]
     Route: 048
  9. ATENOLOL [Concomitant]
     Route: 048
  10. LEVOTHYROXINE SODIUM [Concomitant]
     Route: 048
  11. CLEMASTINE FUMARATE [Concomitant]
     Dates: start: 20111121, end: 20111121
  12. EMEND [Concomitant]
     Dates: start: 20111122, end: 20111123
  13. XELODA [Suspect]
     Indication: BREAST CANCER
     Route: 048
     Dates: start: 20111114
  14. DEXAMETHASONE [Concomitant]
     Dates: start: 20111121, end: 20111121
  15. DEXAMETHASONE [Concomitant]
     Dates: start: 20111129, end: 20111204
  16. FLUTICASONE PROPIONATE/SALMETEROL [Concomitant]
     Dosage: 100/500UG
  17. NEUPOGEN [Concomitant]
     Dosage: TDD: 48
     Dates: start: 20111201, end: 20111201
  18. DEXAMETHASONE [Concomitant]
     Dates: start: 20111122, end: 20111123

REACTIONS (1)
  - LEFT VENTRICULAR FAILURE [None]
